FAERS Safety Report 24695771 (Version 1)
Quarter: 2024Q4

REPORT INFORMATION
  Report Type: Spontaneous
  Country: CL (occurrence: CL)
  Receive Date: 20241204
  Receipt Date: 20241204
  Transmission Date: 20250114
  Serious: Yes (Other)
  Sender: ALKEM
  Company Number: None

PATIENT
  Age: 39 Year
  Sex: Female

DRUGS (5)
  1. MYCOPHENOLATE MOFETIL [Suspect]
     Active Substance: MYCOPHENOLATE MOFETIL
     Indication: Immunosuppressant drug therapy
     Dosage: 360 MILLIGRAM, BID (EVERY 12 HOURS)
     Route: 048
  2. TACROLIMUS [Suspect]
     Active Substance: TACROLIMUS
     Indication: Immunosuppressant drug therapy
     Dosage: 5 MILLIGRAM, BID
     Route: 048
  3. PREDNISONE [Suspect]
     Active Substance: PREDNISONE
     Indication: Immunosuppressant drug therapy
     Dosage: 5 MILLIGRAM, QD
     Route: 048
  4. Gardasyl 9 [Concomitant]
     Indication: Skin papilloma
     Dosage: UNK
     Route: 065
  5. IMIQUIMOD [Concomitant]
     Active Substance: IMIQUIMOD
     Indication: Skin papilloma
     Dosage: UNK
     Route: 061

REACTIONS (1)
  - Epidermodysplasia verruciformis [Recovering/Resolving]

NARRATIVE: CASE EVENT DATE: 20190101
